FAERS Safety Report 5467410-5 (Version None)
Quarter: 2007Q3

REPORT INFORMATION
  Report Type: 
  Country: None (occurrence: None)
  Receive Date: 20070925
  Receipt Date: 20070913
  Transmission Date: 20080115
  Serious: Yes (Other)
  Sender: FDA-Public Use
  Company Number: GB-PFIZER INC-2007076926

PATIENT
  Age: 65 Year
  Sex: Male
  Weight: 88.4 kg

DRUGS (9)
  1. CHAMPIX [Suspect]
     Indication: SMOKING CESSATION THERAPY
     Route: 048
  2. ALLOPURINOL [Concomitant]
     Route: 048
  3. BISOPROLOL [Concomitant]
  4. FUROSEMIDE [Concomitant]
  5. RAMIPRIL [Concomitant]
  6. ROSUVASTATIN [Concomitant]
  7. SERETIDE [Concomitant]
  8. SPIRONOLACTONE [Concomitant]
  9. WARFARIN SODIUM [Concomitant]

REACTIONS (3)
  - DIZZINESS [None]
  - FALL [None]
  - MUSCULAR WEAKNESS [None]
